FAERS Safety Report 13852721 (Version 2)
Quarter: 2017Q3

REPORT INFORMATION
  Report Type: Report from Study
  Country: None (occurrence: CA)
  Receive Date: 20170810
  Receipt Date: 20170904
  Transmission Date: 20171127
  Serious: Yes (Other)
  Sender: FDA-Public Use
  Company Number: CA-ABBVIE-17K-028-2066368-00

PATIENT
  Age: 65 Year
  Sex: Male
  Weight: 82.63 kg

DRUGS (5)
  1. IMURAN [Concomitant]
     Active Substance: AZATHIOPRINE
     Indication: PRODUCT USED FOR UNKNOWN INDICATION
     Dates: start: 201207, end: 2015
  2. HUMIRA [Suspect]
     Active Substance: ADALIMUMAB
     Indication: CROHN^S DISEASE
     Route: 058
     Dates: start: 20130616
  3. VENTOLIN [Concomitant]
     Active Substance: ALBUTEROL SULFATE
     Indication: ASTHMA
     Route: 055
  4. RABEPRAZOLE [Concomitant]
     Active Substance: RABEPRAZOLE
     Indication: GASTROOESOPHAGEAL REFLUX DISEASE
     Route: 048
     Dates: start: 201207, end: 2015
  5. SYMBICORT [Concomitant]
     Active Substance: BUDESONIDE\FORMOTEROL FUMARATE DIHYDRATE
     Indication: ASTHMA
     Route: 055

REACTIONS (8)
  - Hyperkeratosis [Unknown]
  - Lip neoplasm benign [Recovered/Resolved]
  - Cheilitis [Unknown]
  - Lip pain [Recovered/Resolved with Sequelae]
  - Lip disorder [Not Recovered/Not Resolved]
  - Soft tissue mass [Unknown]
  - Acanthosis [Unknown]
  - Lip ulceration [Unknown]

NARRATIVE: CASE EVENT DATE: 201604
